FAERS Safety Report 25761891 (Version 2)
Quarter: 2025Q3

REPORT INFORMATION
  Report Type: Spontaneous
  Country: EU (occurrence: EU)
  Receive Date: 20250904
  Receipt Date: 20250925
  Transmission Date: 20251021
  Serious: Yes (Hospitalization)
  Sender: TEVA
  Company Number: EU-TEVA-VS-3367677

PATIENT
  Age: 25 Year
  Sex: Female

DRUGS (5)
  1. PREDNISONE [Suspect]
     Active Substance: PREDNISONE
     Indication: Insulin autoimmune syndrome
     Dosage: FOR 2 WEEKS
     Route: 065
  2. INSULIN ASPART [Suspect]
     Active Substance: INSULIN ASPART
     Indication: Hyperglycaemia
     Route: 065
  3. INSULIN ASPART [Suspect]
     Active Substance: INSULIN ASPART
     Indication: Hyperglycaemia
     Route: 065
  4. THIOCTIC ACID [Suspect]
     Active Substance: THIOCTIC ACID
     Indication: Prophylaxis
     Route: 065
  5. DEXTROSE [Suspect]
     Active Substance: DEXTROSE MONOHYDRATE
     Indication: Hypoglycaemia
     Route: 042

REACTIONS (5)
  - Insulin autoimmune syndrome [Recovered/Resolved]
  - Maternal exposure during pregnancy [Unknown]
  - Polyhydramnios [Recovered/Resolved]
  - Hyperglycaemia [Recovered/Resolved]
  - Live birth [Unknown]
